FAERS Safety Report 11219922 (Version 1)
Quarter: 2015Q2

REPORT INFORMATION
  Report Type: Report from Study
  Country: FR (occurrence: FR)
  Receive Date: 20150625
  Receipt Date: 20150625
  Transmission Date: 20150821
  Serious: Yes (Hospitalization)
  Sender: FDA-Public Use
  Company Number: FR-GLAXOSMITHKLINE-FR2015GSK088855

PATIENT
  Age: 78 Year
  Sex: Female

DRUGS (9)
  1. PLAVIX [Concomitant]
     Active Substance: CLOPIDOGREL BISULFATE
     Dosage: 75 MG, UNK
  2. OMEGA-3-ACID ETHYL ESTERS. [Suspect]
     Active Substance: OMEGA-3-ACID ETHYL ESTERS
     Indication: ISCHAEMIC HEART DISEASE PROPHYLAXIS
     Dosage: UNK
     Dates: start: 20060908
  3. SELOKEN [Concomitant]
     Active Substance: METOPROLOL
  4. NOVONORM [Concomitant]
     Active Substance: REPAGLINIDE
     Dosage: 2 MG, UNK
  5. GLUCOPHAGE [Concomitant]
     Active Substance: METFORMIN HYDROCHLORIDE
     Dosage: 1000 MG, UNK
  6. KARDEGIC [Concomitant]
     Active Substance: ASPIRIN LYSINE
     Dosage: 75 MG, UNK
  7. LOPRESSOR [Concomitant]
     Active Substance: METOPROLOL TARTRATE
     Dosage: 100 MG, UNK
  8. AMAREL [Concomitant]
     Active Substance: GLIMEPIRIDE
  9. ELISOR [Concomitant]
     Active Substance: PRAVASTATIN SODIUM

REACTIONS (1)
  - Vascular occlusion [Unknown]

NARRATIVE: CASE EVENT DATE: 20080226
